FAERS Safety Report 11100076 (Version 1)
Quarter: 2015Q2

REPORT INFORMATION
  Report Type: Spontaneous
  Country: US (occurrence: US)
  Receive Date: 20150508
  Receipt Date: 20150508
  Transmission Date: 20150821
  Serious: No
  Sender: FDA-Public Use
  Company Number: US-009507513-1505USA002693

PATIENT
  Age: 38 Year
  Sex: Female
  Weight: 84 kg

DRUGS (1)
  1. CLEAR AWAY GEL WITH ALOE [Suspect]
     Active Substance: ALOE VERA LEAF\SALICYLIC ACID
     Indication: PRODUCT USED FOR UNKNOWN INDICATION
     Dosage: EVERY 48 HOURS
     Route: 061
     Dates: start: 201503, end: 201504

REACTIONS (2)
  - Burning sensation [Unknown]
  - Pain in extremity [Unknown]

NARRATIVE: CASE EVENT DATE: 201503
